FAERS Safety Report 20881574 (Version 1)
Quarter: 2022Q2

REPORT INFORMATION
  Report Type: Spontaneous
  Country: IN (occurrence: IN)
  Receive Date: 20220527
  Receipt Date: 20220527
  Transmission Date: 20220721
  Serious: Yes (Other)
  Sender: FDA-Public Use
  Company Number: None

PATIENT
  Age: 29 Year
  Sex: Male

DRUGS (4)
  1. CYPROHEPTADINE [Suspect]
     Active Substance: CYPROHEPTADINE
     Indication: Decreased appetite
     Dosage: 4 MILLIGRAM, BID
     Route: 065
     Dates: start: 202107, end: 20210806
  2. AMITRIPTYLINE [Suspect]
     Active Substance: AMITRIPTYLINE
     Indication: Product used for unknown indication
     Dosage: 25 MILLIGRAM, PER DAY
     Route: 065
     Dates: start: 202102, end: 20210806
  3. CLEMASTINE [Suspect]
     Active Substance: CLEMASTINE
     Indication: Urticaria chronic
     Dosage: 10 MILLIGRAM, PER DAY
     Route: 065
     Dates: start: 202105, end: 20210806
  4. DOMPERIDONE\PANTOPRAZOLE SODIUM [Suspect]
     Active Substance: DOMPERIDONE\PANTOPRAZOLE SODIUM
     Indication: Product used for unknown indication
     Dosage: UNK
     Route: 065
     Dates: start: 202102, end: 20210806

REACTIONS (2)
  - Erectile dysfunction [Recovered/Resolved]
  - Off label use [Unknown]

NARRATIVE: CASE EVENT DATE: 20210806
